FAERS Safety Report 21484018 (Version 2)
Quarter: 2023Q1

REPORT INFORMATION
  Report Type: Spontaneous
  Country: US (occurrence: US)
  Receive Date: 20221020
  Receipt Date: 20230203
  Transmission Date: 20230418
  Serious: No
  Sender: FDA-Public Use
  Company Number: US-BRISTOL-MYERS SQUIBB COMPANY-2022-123802

PATIENT
  Age: 63 Year
  Sex: Female

DRUGS (2)
  1. POMALYST [Suspect]
     Active Substance: POMALIDOMIDE
     Indication: Iron deficiency anaemia
     Route: 048
     Dates: start: 20220202
  2. VITAMIN D3 [Concomitant]
     Active Substance: CHOLECALCIFEROL
     Indication: Product used for unknown indication
     Dosage: 2000 UNIT

REACTIONS (5)
  - Paraesthesia [Unknown]
  - Product dose omission issue [Unknown]
  - Off label use [Unknown]
  - Neuralgia [Unknown]
  - Nasopharyngitis [Unknown]
